FAERS Safety Report 5840358-X (Version None)
Quarter: 2008Q3

REPORT INFORMATION
  Report Type: 
  Country: None (occurrence: None)
  Receive Date: 20080811
  Receipt Date: 20080730
  Transmission Date: 20090109
  Serious: Yes (Hospitalization)
  Sender: FDA-Public Use
  Company Number: JP-MERCK-0807USA01886

PATIENT
  Age: 81 Year
  Sex: Female

DRUGS (17)
  1. PEPCID RPD [Suspect]
     Route: 048
  2. DEPAS [Suspect]
     Indication: INSOMNIA
     Route: 048
     Dates: start: 20040401, end: 20080708
  3. MAALOX [Concomitant]
     Indication: GASTRITIS
     Route: 048
     Dates: start: 20040901
  4. MICARDIS [Suspect]
     Indication: HYPERTENSION
     Route: 048
     Dates: start: 20061201, end: 20080709
  5. DOGMATYL [Suspect]
     Route: 048
  6. ITOROL [Concomitant]
     Indication: ANGINA PECTORIS
     Route: 048
     Dates: start: 20040701
  7. FRANDOL [Concomitant]
     Indication: ANGINA PECTORIS
     Route: 048
     Dates: start: 20060401
  8. LUPRAC [Suspect]
     Indication: CARDIAC FAILURE
     Route: 048
     Dates: start: 20080501, end: 20080709
  9. OPALMON [Concomitant]
     Indication: SPINAL OSTEOARTHRITIS
     Route: 048
     Dates: start: 20040401
  10. CEROCRAL [Concomitant]
     Indication: DIZZINESS
     Route: 048
     Dates: start: 20040401
  11. SIGMART [Concomitant]
     Indication: ANGINA PECTORIS
     Route: 048
     Dates: start: 20051201
  12. ALINAMIN F (FURSULTIAMINE HYDROCHLORIDE) [Concomitant]
     Route: 048
     Dates: start: 20080401
  13. JUVELA N [Concomitant]
     Route: 048
     Dates: start: 20040401
  14. HERBESSER R [Concomitant]
     Indication: ANGINA PECTORIS
     Route: 048
     Dates: start: 20051001
  15. LASIX [Concomitant]
     Indication: CARDIAC FAILURE
     Route: 048
     Dates: start: 20080301
  16. ROCALTROL [Concomitant]
     Indication: OSTEOPOROSIS
     Route: 048
     Dates: start: 20040401
  17. HANP [Concomitant]
     Indication: CARDIAC FAILURE
     Route: 065
     Dates: start: 20080706, end: 20080708

REACTIONS (1)
  - RHABDOMYOLYSIS [None]
